FAERS Safety Report 13449596 (Version 2)
Quarter: 2017Q2

REPORT INFORMATION
  Report Type: Spontaneous
  Country: FR (occurrence: FR)
  Receive Date: 20170417
  Receipt Date: 20170418
  Transmission Date: 20170830
  Serious: Yes (Other)
  Sender: FDA-Public Use
  Company Number: FR-PFIZER INC-2016432751

PATIENT
  Age: 3 Year
  Sex: Female
  Weight: 12 kg

DRUGS (3)
  1. EPANUTIN [Suspect]
     Active Substance: PHENYTOIN SODIUM
     Dosage: DOSE REDUCED
     Route: 048
     Dates: start: 2015, end: 2015
  2. EPANUTIN [Suspect]
     Active Substance: PHENYTOIN SODIUM
     Indication: EPILEPSY
     Dosage: 6 ML, 2X/DAY IN THE MORNING AND IN THE EVENING
     Route: 048
     Dates: start: 2013, end: 2015
  3. EPANUTIN [Suspect]
     Active Substance: PHENYTOIN SODIUM
     Dosage: 6 ML, 2X/DAY IN THE MORNING AND IN THE EVENING
     Route: 048
     Dates: start: 2015

REACTIONS (4)
  - Gamma-glutamyltransferase increased [Recovered/Resolved]
  - Alanine aminotransferase increased [Recovered/Resolved]
  - Eosinophilia [Recovered/Resolved]
  - Aspartate aminotransferase increased [Unknown]

NARRATIVE: CASE EVENT DATE: 201606
